FAERS Safety Report 21507931 (Version 2)
Quarter: 2022Q4

REPORT INFORMATION
  Report Type: Spontaneous
  Country: US (occurrence: None)
  Receive Date: 20221026
  Receipt Date: 20221107
  Transmission Date: 20230113
  Serious: Yes (Death, Life-Threatening, Hospitalization, Other)
  Sender: FDA-Public Use
  Company Number: US-MLMSERVICE-20221010-3847527-1

PATIENT
  Age: 22 Year
  Sex: Male

DRUGS (1)
  1. FENTANYL [Suspect]
     Active Substance: FENTANYL
     Indication: Suicide attempt
     Dosage: UNKNOWN
     Route: 065

REACTIONS (9)
  - Encephalitis [Fatal]
  - Coma [Fatal]
  - Hydrocephalus [Fatal]
  - Respiratory failure [Fatal]
  - Brain herniation [Fatal]
  - Counterfeit product administered [Fatal]
  - Toxicity to various agents [Fatal]
  - Drug abuse [Unknown]
  - Intentional overdose [Fatal]
